FAERS Safety Report 5896816-5 (Version None)
Quarter: 2008Q3

REPORT INFORMATION
  Report Type: 
  Country: None (occurrence: None)
  Receive Date: 20080924
  Receipt Date: 20071214
  Transmission Date: 20090109
  Serious: Yes (Other)
  Sender: FDA-Public Use
  Company Number: US-ASTRAZENECA-2007UW28405

PATIENT
  Age: 56 Year
  Sex: Male

DRUGS (1)
  1. SEROQUEL [Suspect]
     Route: 048

REACTIONS (8)
  - ANXIETY [None]
  - BACK PAIN [None]
  - DEPRESSION [None]
  - HYPERTENSION [None]
  - ILL-DEFINED DISORDER [None]
  - PAIN IN EXTREMITY [None]
  - PHOBIA [None]
  - SUICIDAL IDEATION [None]
